FAERS Safety Report 5887874-2 (Version None)
Quarter: 2008Q3

REPORT INFORMATION
  Report Type: 
  Country: None (occurrence: None)
  Receive Date: 20080917
  Receipt Date: 20080917
  Transmission Date: 20090109
  Serious: Yes (Other)
  Sender: FDA-Public Use
  Company Number: None

PATIENT
  Age: 26 Year
  Sex: Male
  Weight: 77.1115 kg

DRUGS (1)
  1. CLARITHROMYCIN EXTENDED RELEASE [Suspect]
     Indication: PNEUMONIA MYCOPLASMAL
     Dosage: 500 MG TWICE A DAY PO
     Route: 048
     Dates: start: 20080903, end: 20080910

REACTIONS (5)
  - FATIGUE [None]
  - IMPAIRED WORK ABILITY [None]
  - MEDICATION TAMPERING [None]
  - SEDATION [None]
  - SOMNOLENCE [None]
